FAERS Safety Report 15145445 (Version 1)
Quarter: 2018Q3

REPORT INFORMATION
  Report Type: Spontaneous
  Country: BR (occurrence: BR)
  Receive Date: 20180713
  Receipt Date: 20180713
  Transmission Date: 20181010
  Serious: Yes (Other)
  Sender: FDA-Public Use
  Company Number: BR-B.I. PHARMACEUTICALS,INC./RIDGEFIELD-2018-BI-035755

PATIENT
  Age: 14 Year
  Sex: Male
  Weight: 42 kg

DRUGS (6)
  1. DIPIRONA [Suspect]
     Active Substance: METAMIZOLE
     Indication: PRODUCT USED FOR UNKNOWN INDICATION
     Dosage: STRENGTH: 500 MG/ML; UNIT DOSE: 1 VIAL OF 10 ML
     Route: 048
     Dates: start: 20180710, end: 20180710
  2. AMOXICILLIN. [Suspect]
     Active Substance: AMOXICILLIN
     Indication: PRODUCT USED FOR UNKNOWN INDICATION
     Dosage: UNIT DOSE: 6 TABLETS
     Route: 048
     Dates: start: 20180710, end: 20180710
  3. ENALAPRIL [Suspect]
     Active Substance: ENALAPRIL
     Indication: PRODUCT USED FOR UNKNOWN INDICATION
     Dosage: UNIT DOSE: UNDETERMINED AMOUNT
     Route: 048
     Dates: start: 20180710, end: 20180710
  4. ATENSINA [Suspect]
     Active Substance: CLONIDINE
     Indication: PRODUCT USED FOR UNKNOWN INDICATION
     Dosage: UNIT DOSE: 9 TABLETS
     Route: 048
     Dates: start: 20180710, end: 20180710
  5. CLORTALIDONA [Suspect]
     Active Substance: CHLORTHALIDONE
     Indication: PRODUCT USED FOR UNKNOWN INDICATION
     Dosage: UNIT DOSE: 7 TABLETS
     Route: 048
     Dates: start: 20180710, end: 20180710
  6. LACRIFILM [Suspect]
     Active Substance: CARBOXYMETHYLCELLULOSE SODIUM
     Indication: PRODUCT USED FOR UNKNOWN INDICATION
     Dosage: STRENGTH: 5 MG/ML; UNIT DOSE: 1 VIAL OF 10 ML
     Route: 048
     Dates: start: 20180710, end: 20180710

REACTIONS (3)
  - Suicide attempt [Recovered/Resolved]
  - Tremor [Recovered/Resolved]
  - Intentional overdose [Recovered/Resolved]

NARRATIVE: CASE EVENT DATE: 20180710
